FAERS Safety Report 7808347-3 (Version None)
Quarter: 2011Q4

REPORT INFORMATION
  Report Type: 
  Country: None (occurrence: None)
  Receive Date: 20111012
  Receipt Date: 20110930
  Transmission Date: 20120403
  Serious: Yes (Hospitalization, Other)
  Sender: FDA-Public Use
  Company Number: US-ELI_LILLY_AND_COMPANY-US201110000575

PATIENT
  Sex: Male

DRUGS (8)
  1. HUMATROPE [Suspect]
     Indication: GROWTH HORMONE DEFICIENCY
     Dosage: 0.4 MG, QD
  2. TERAZOSIN HCL [Concomitant]
     Dosage: 1 MG, QD
  3. NIACIN [Concomitant]
     Dosage: 2 DF, QD
  4. ACTOS [Concomitant]
     Dosage: 15 MG, QD
  5. HYDROCHLOROTHIAZIDE [Concomitant]
     Dosage: 12.5 MG, QD
  6. CARVEDILOL [Concomitant]
     Dosage: 3.125 MG, BID
  7. FLUNISOLIDE [Concomitant]
     Dosage: 2 DF, QD
     Route: 045
  8. ACETYLSALICYLIC ACID [Concomitant]
     Dosage: 81 MG, BID

REACTIONS (6)
  - HYPOACUSIS [None]
  - GENERAL PHYSICAL HEALTH DETERIORATION [None]
  - MOBILITY DECREASED [None]
  - MEMORY IMPAIRMENT [None]
  - DEHYDRATION [None]
  - DRUG DOSE OMISSION [None]
